FAERS Safety Report 10080611 (Version 2)
Quarter: 2014Q2

REPORT INFORMATION
  Report Type: Spontaneous
  Country: US (occurrence: US)
  Receive Date: 20140416
  Receipt Date: 20140609
  Transmission Date: 20141212
  Serious: No
  Sender: FDA-Public Use
  Company Number: US-009507513-1403USA008826

PATIENT
  Age: 53 Year
  Sex: Female
  Weight: 52.61 kg

DRUGS (4)
  1. PEGINTRON [Suspect]
     Indication: HEPATITIS C
     Dosage: REDIPEN, 80 MCG/.5 ML, 0.5 ML, QW
     Route: 058
     Dates: start: 20140314
  2. REBETOL [Suspect]
     Indication: HEPATITIS C
     Dosage: 200 MG, 2 AM, 3 PM
     Route: 048
     Dates: start: 20140314
  3. XANAX [Concomitant]
     Dosage: 1 MG, HS
  4. SOVALDI [Concomitant]
     Indication: HEPATITIS C
     Dosage: 400 MG, QD
     Dates: start: 20140314

REACTIONS (5)
  - Pain [Recovered/Resolved]
  - Influenza like illness [Recovered/Resolved]
  - Chills [Recovered/Resolved]
  - Headache [Recovered/Resolved]
  - Fatigue [Recovered/Resolved]
